FAERS Safety Report 23278900 (Version 1)
Quarter: 2023Q4

REPORT INFORMATION
  Report Type: Spontaneous
  Country: US (occurrence: US)
  Receive Date: 20231208
  Receipt Date: 20231208
  Transmission Date: 20240110
  Serious: No
  Sender: FDA-Public Use
  Company Number: US-NOVOPROD-1034754

PATIENT
  Age: 53 Year
  Sex: Male

DRUGS (1)
  1. NOVOLIN 70/30 [Suspect]
     Active Substance: INSULIN HUMAN
     Indication: Type 2 diabetes mellitus
     Dosage: UNK
     Route: 058
     Dates: start: 202208

REACTIONS (4)
  - Pain [Not Recovered/Not Resolved]
  - Skin disorder [Recovered/Resolved]
  - Blood glucose increased [Not Recovered/Not Resolved]
  - Lack of administration site rotation [Recovered/Resolved]

NARRATIVE: CASE EVENT DATE: 20230216
